FAERS Safety Report 5650600-6 (Version None)
Quarter: 2008Q1

REPORT INFORMATION
  Report Type: 
  Country: None (occurrence: None)
  Receive Date: 20080304
  Receipt Date: 20080304
  Transmission Date: 20080703
  Serious: Yes (Other)
  Sender: FDA-Public Use
  Company Number: None

PATIENT
  Age: 20 Year
  Sex: Female
  Weight: 65.7716 kg

DRUGS (3)
  1. CIPROFLOXACIN [Suspect]
     Indication: INFECTION
     Dosage: 500MG TWICE DAILY PO
     Route: 048
     Dates: start: 20080220, end: 20080223
  2. CIPROFLOXACIN [Suspect]
     Indication: INFLUENZA
     Dosage: 500MG TWICE DAILY PO
     Route: 048
     Dates: start: 20080220, end: 20080223
  3. CIPROFLOXACIN [Suspect]
     Indication: STREPTOCOCCAL INFECTION
     Dosage: 500MG TWICE DAILY PO
     Route: 048
     Dates: start: 20080220, end: 20080223

REACTIONS (3)
  - JOINT SWELLING [None]
  - PAIN [None]
  - PARAESTHESIA [None]
